FAERS Safety Report 9669635 (Version 1)
Quarter: 2013Q4

REPORT INFORMATION
  Report Type: Spontaneous
  Country: FR (occurrence: None)
  Receive Date: 20131101
  Receipt Date: 20131101
  Transmission Date: 20140711
  Serious: No
  Sender: FDA-Public Use
  Company Number: FR-2013-3554

PATIENT
  Sex: Female

DRUGS (2)
  1. VINORELBINE [Suspect]
     Indication: BREAST CANCER
     Dosage: 25 MG/M2, ON DAYS 1 AND 6
     Route: 042
  2. FLUOROURACIL [Suspect]
     Indication: BREAST CANCER
     Route: 042

REACTIONS (3)
  - Skin toxicity [None]
  - Toxicity to various agents [None]
  - Febrile neutropenia [None]
